FAERS Safety Report 16297052 (Version 1)
Quarter: 2019Q2

REPORT INFORMATION
  Report Type: Spontaneous
  Country: US (occurrence: US)
  Receive Date: 20190510
  Receipt Date: 20190510
  Transmission Date: 20190711
  Serious: Yes (Other)
  Sender: FDA-Public Use
  Company Number: PHHY2019US103483

PATIENT
  Age: 76 Year
  Sex: Male

DRUGS (7)
  1. QUETIAPINE. [Suspect]
     Active Substance: QUETIAPINE
     Dosage: 50MG Q AM, 50MG MID-DAY AND 100MG Q PM
     Route: 065
  2. RISPERIDONE. [Suspect]
     Active Substance: RISPERIDONE
     Indication: AGGRESSION
     Dosage: 1 MG, BID
     Route: 065
  3. LEVODOPA/CARBIDOPA [Concomitant]
     Active Substance: CARBIDOPA\LEVODOPA
     Indication: DEMENTIA
     Dosage: 2 DF, TID
     Route: 065
  4. QUETIAPINE. [Suspect]
     Active Substance: QUETIAPINE
     Dosage: 25MG Q AM, MID-DAY 12.5MG AND 150MG Q PM
     Route: 065
  5. LEVODOPA/CARBIDOPA [Concomitant]
     Active Substance: CARBIDOPA\LEVODOPA
     Indication: PARKINSON^S DISEASE
  6. QUETIAPINE. [Suspect]
     Active Substance: QUETIAPINE
     Indication: DEMENTIA
     Dosage: 12.5 MG Q AM AND 25MG Q PM
     Route: 065
  7. QUETIAPINE. [Suspect]
     Active Substance: QUETIAPINE
     Dosage: 100MG AM, 50MG MID-DAY 150MG Q PM
     Route: 065

REACTIONS (6)
  - Muscle rigidity [Recovering/Resolving]
  - Depressed level of consciousness [Unknown]
  - Somnolence [Recovering/Resolving]
  - Unresponsive to stimuli [Unknown]
  - Delirium [Recovering/Resolving]
  - Cogwheel rigidity [Recovering/Resolving]
